FAERS Safety Report 8621698-8 (Version None)
Quarter: 2012Q3

REPORT INFORMATION
  Report Type: 
  Country: None (occurrence: None)
  Receive Date: 20120821
  Receipt Date: 20120821
  Transmission Date: 20120928
  Serious: Yes (Disabling, Other)
  Sender: FDA-Public Use
  Company Number: None

PATIENT
  Age: 40 Year
  Sex: Female

DRUGS (2)
  1. ESCITALOPRAM [Suspect]
     Indication: MAJOR DEPRESSION
     Dosage: 40 MG, DAILY, PO
     Route: 048
     Dates: start: 20060101, end: 20120819
  2. VENLAFAXINE [Suspect]
     Indication: MAJOR DEPRESSION
     Dosage: 450 MG, DAILY, PO
     Route: 048
     Dates: start: 20060101, end: 20120819

REACTIONS (5)
  - PRODUCT SUBSTITUTION ISSUE [None]
  - DEPRESSION [None]
  - ANXIETY [None]
  - WITHDRAWAL SYNDROME [None]
  - ECONOMIC PROBLEM [None]
